FAERS Safety Report 9283607 (Version 4)
Quarter: 2013Q3

REPORT INFORMATION
  Report Type: Spontaneous
  Country: US (occurrence: US)
  Receive Date: 20130510
  Receipt Date: 20130821
  Transmission Date: 20140515
  Serious: Yes (Life-Threatening, Hospitalization, Disabling, Other)
  Sender: FDA-Public Use
  Company Number: US-009507513-1305USA003292

PATIENT
  Age: 57 Year
  Sex: Female
  Weight: 77.55 kg

DRUGS (7)
  1. JANUVIA [Suspect]
     Indication: TYPE 2 DIABETES MELLITUS
     Dosage: 100 MG, QD
     Route: 048
     Dates: start: 2008, end: 20130318
  2. JANUMET [Suspect]
     Indication: TYPE 2 DIABETES MELLITUS
     Route: 048
  3. GLUCOPHAGE [Suspect]
     Indication: TYPE 2 DIABETES MELLITUS
     Dosage: 1000 MG, BID
     Dates: end: 20121115
  4. GLYBURIDE [Concomitant]
     Indication: TYPE 2 DIABETES MELLITUS
     Dosage: 2.5 MG, UNK
  5. DIOVAN HCT [Concomitant]
     Indication: HYPERTENSION
  6. SIMVASTATIN TABLETS, USP [Concomitant]
     Indication: BLOOD CHOLESTEROL INCREASED
  7. LOVAZA [Concomitant]

REACTIONS (22)
  - Lipase increased [Not Recovered/Not Resolved]
  - Pancreatitis chronic [Not Recovered/Not Resolved]
  - Diarrhoea [Recovered/Resolved]
  - Ovarian cyst [Unknown]
  - Cardiac murmur [Unknown]
  - Gastrointestinal disorder [Recovered/Resolved]
  - Polydipsia [Recovered/Resolved]
  - Somnolence [Unknown]
  - Fatigue [Unknown]
  - Metabolic disorder [Unknown]
  - Albuminuria [Unknown]
  - Sleep apnoea syndrome [Unknown]
  - Treatment noncompliance [Not Recovered/Not Resolved]
  - Dry mouth [Recovering/Resolving]
  - Viral upper respiratory tract infection [Recovering/Resolving]
  - Upper-airway cough syndrome [Unknown]
  - Diabetes mellitus inadequate control [Not Recovered/Not Resolved]
  - Sinusitis [Unknown]
  - Ingrowing nail [Unknown]
  - Cellulitis [Unknown]
  - Depression [Unknown]
  - Abdominal pain [Recovered/Resolved]
